FAERS Safety Report 22141128 (Version 1)
Quarter: 2023Q1

REPORT INFORMATION
  Report Type: Report from Study
  Country: BE (occurrence: None)
  Receive Date: 20230327
  Receipt Date: 20230327
  Transmission Date: 20230418
  Serious: Yes (Other)
  Sender: FDA-Public Use
  Company Number: BE-ROCHE-3317230

PATIENT
  Age: 67 Year
  Sex: Male

DRUGS (15)
  1. LENALIDOMIDE [Suspect]
     Active Substance: LENALIDOMIDE
     Indication: Follicular lymphoma
     Dosage: ON 03/NOV/2016, LAST DOSES OF BLINDED LENALIDOMIDE WAS RECEIVED PRIOR TO ONSET OF THE EVENT.
     Route: 048
     Dates: start: 20151204
  2. RITUXIMAB [Suspect]
     Active Substance: RITUXIMAB
     Indication: Follicular lymphoma
     Dosage: ON 01/APR/2016, LAST DOSES OF RITUXIMAB WAS RECEIVED PRIOR TO ONSET OF THE EVENT.
     Route: 042
     Dates: start: 20151204
  3. PANTOPRAZOLE SODIUM [Concomitant]
     Active Substance: PANTOPRAZOLE SODIUM
  4. RAMIPRIL [Concomitant]
     Active Substance: RAMIPRIL
  5. BISOPROLOL [Concomitant]
     Active Substance: BISOPROLOL
  6. ZYPREXA [Concomitant]
     Active Substance: OLANZAPINE
     Indication: Schizophrenia
  7. NESTROLAN [Concomitant]
     Indication: Schizophrenia
  8. LORAZEPAM [Concomitant]
     Active Substance: LORAZEPAM
     Indication: Schizophrenia
  9. VENLAFAXINE HYDROCHLORIDE [Concomitant]
     Active Substance: VENLAFAXINE HYDROCHLORIDE
     Indication: Schizophrenia
  10. ANTABUSE [Concomitant]
     Active Substance: DISULFIRAM
     Indication: Alcoholism
  11. ANATABINE [Concomitant]
     Active Substance: ANATABINE
     Indication: Alcoholism
  12. ASPIRIN [Concomitant]
     Active Substance: ASPIRIN
  13. PRIMIDONE [Concomitant]
     Active Substance: PRIMIDONE
     Indication: Tremor
  14. BEFACT FORTE [Concomitant]
  15. FENOTEROL HYDROBROMIDE [Concomitant]
     Active Substance: FENOTEROL HYDROBROMIDE
     Indication: Respiratory tract infection

REACTIONS (1)
  - Acute myeloid leukaemia [Not Recovered/Not Resolved]

NARRATIVE: CASE EVENT DATE: 20171129
